FAERS Safety Report 5319192-5 (Version None)
Quarter: 2007Q2

REPORT INFORMATION
  Report Type: 
  Country: None (occurrence: None)
  Receive Date: 20070508
  Receipt Date: 20070427
  Transmission Date: 20071010
  Serious: Yes (Hospitalization)
  Sender: FDA-Public Use
  Company Number: GR-ASTRAZENECA-2007SE02414

PATIENT
  Age: 29 Year
  Sex: Female

DRUGS (3)
  1. CRESTOR [Suspect]
     Indication: SUICIDE ATTEMPT
     Route: 048
     Dates: start: 20070425, end: 20070425
  2. XANAX [Suspect]
     Indication: SUICIDE ATTEMPT
     Dosage: 5 TABLETS
     Route: 048
     Dates: start: 20070425, end: 20070425
  3. PLAVIX [Suspect]
     Indication: SUICIDE ATTEMPT
     Dosage: 40 TABLETS
     Route: 048
     Dates: start: 20070425, end: 20070425

REACTIONS (4)
  - CONFUSIONAL STATE [None]
  - INTENTIONAL OVERDOSE [None]
  - POISONING [None]
  - SUICIDE ATTEMPT [None]
